FAERS Safety Report 9472385 (Version 3)
Quarter: 2013Q4

REPORT INFORMATION
  Report Type: Report from Study
  Country: DE (occurrence: DE)
  Receive Date: 20130823
  Receipt Date: 20131126
  Transmission Date: 20140711
  Serious: Yes (Death)
  Sender: FDA-Public Use
  Company Number: DE-AMGEN-DEUCT2012074370

PATIENT
  Age: 65 Year
  Sex: Female
  Weight: 90 kg

DRUGS (6)
  1. ETANERCEPT [Suspect]
     Indication: RHEUMATOID ARTHRITIS
     Dosage: UNK
     Route: 065
     Dates: start: 20111013
  2. QUENSYL [Concomitant]
     Indication: RHEUMATOID ARTHRITIS
     Dosage: 200 MG, 2X/DAY
     Dates: start: 2005
  3. MTX                                /00113801/ [Concomitant]
     Indication: RHEUMATOID ARTHRITIS
     Dosage: 15 MG, WEEKLY
     Dates: start: 2005
  4. PREDNISOLON                        /00016201/ [Concomitant]
     Indication: RHEUMATOID ARTHRITIS
     Dosage: 10 MG, WEEKLY
     Dates: start: 2005, end: 201112
  5. ISOZID-COMPOSITUM [Concomitant]
     Indication: LATENT TUBERCULOSIS
     Dosage: 300 MG, UNK
     Dates: start: 201109
  6. VITAMIN D                          /00107901/ [Concomitant]
     Indication: OSTEOPENIA
     Dosage: 1000 IU, 1X/DAY
     Dates: start: 201109

REACTIONS (1)
  - Death [Fatal]
